FAERS Safety Report 9310110 (Version 2)
Quarter: 2013Q3

REPORT INFORMATION
  Report Type: Spontaneous
  Country: US (occurrence: US)
  Receive Date: 20130527
  Receipt Date: 20130813
  Transmission Date: 20140515
  Serious: No
  Sender: FDA-Public Use
  Company Number: US-BIOGENIDEC-2013BI046794

PATIENT
  Age: 58 Year
  Sex: Male

DRUGS (5)
  1. TYSABRI [Suspect]
     Indication: MULTIPLE SCLEROSIS
     Route: 042
     Dates: start: 20110624, end: 20110818
  2. TYSABRI [Suspect]
     Indication: MULTIPLE SCLEROSIS
     Route: 042
     Dates: start: 20130124, end: 20130625
  3. AVONEX [Concomitant]
     Route: 030
     Dates: start: 20130124
  4. BENADRYL [Concomitant]
     Indication: PREMEDICATION
  5. SOLUMEDROL [Concomitant]
     Indication: PREMEDICATION

REACTIONS (5)
  - Hypersensitivity [Unknown]
  - Rash [Recovered/Resolved]
  - Urinary tract infection [Not Recovered/Not Resolved]
  - Urticaria [Unknown]
  - Asthenia [Not Recovered/Not Resolved]
